FAERS Safety Report 11320552 (Version 1)
Quarter: 2015Q3

REPORT INFORMATION
  Report Type: Spontaneous
  Country: US (occurrence: US)
  Receive Date: 20150729
  Receipt Date: 20150729
  Transmission Date: 20151125
  Serious: No
  Sender: FDA-Public Use
  Company Number: US-BAUSCH-BL-2014-010027

PATIENT
  Age: 39 Year
  Sex: Female

DRUGS (1)
  1. OPCON-A [Suspect]
     Active Substance: NAPHAZOLINE HYDROCHLORIDE\PHENIRAMINE MALEATE
     Indication: EYE IRRITATION
     Dosage: INSTILLED 1 DROP IN THE LEFT EYE ONCE
     Route: 047
     Dates: start: 20141215, end: 20141215

REACTIONS (4)
  - Vision blurred [Not Recovered/Not Resolved]
  - Expired product administered [Unknown]
  - Mydriasis [Recovering/Resolving]
  - Eye irritation [Unknown]

NARRATIVE: CASE EVENT DATE: 20141215
